FAERS Safety Report 20694737 (Version 1)
Quarter: 2022Q2

REPORT INFORMATION
  Report Type: Report from Study
  Country: AR (occurrence: AR)
  Receive Date: 20220411
  Receipt Date: 20220411
  Transmission Date: 20220721
  Serious: Yes (Other)
  Sender: FDA-Public Use
  Company Number: AR-NOVARTISPH-NVSC2022AR039869

PATIENT
  Sex: Female

DRUGS (4)
  1. HYDROCHLOROTHIAZIDE\VALSARTAN [Suspect]
     Active Substance: HYDROCHLOROTHIAZIDE\VALSARTAN
     Indication: Blood pressure increased
     Dosage: 1 DOSAGE FORM, QD
     Route: 065
     Dates: start: 2006
  2. ESCITALOPRAM OXALATE [Concomitant]
     Active Substance: ESCITALOPRAM OXALATE
     Indication: Depression
     Dosage: UNK
     Route: 065
  3. SOMIT [Concomitant]
     Indication: Sleep disorder
     Dosage: UNK
     Route: 065
  4. ATARAXONE [Concomitant]
     Indication: Hypersensitivity
     Dosage: 25
     Route: 065

REACTIONS (6)
  - Blood pressure increased [Not Recovered/Not Resolved]
  - Femur fracture [Unknown]
  - Arthritis [Recovering/Resolving]
  - Pain [Unknown]
  - Accident at home [Unknown]
  - Intentional dose omission [Unknown]
